FAERS Safety Report 13771310 (Version 1)
Quarter: 2017Q3

REPORT INFORMATION
  Report Type: Spontaneous
  Country: US (occurrence: US)
  Receive Date: 20170720
  Receipt Date: 20170720
  Transmission Date: 20171127
  Serious: Yes (Hospitalization)
  Sender: FDA-Public Use
  Company Number: None

PATIENT
  Age: 56 Year
  Sex: Male

DRUGS (9)
  1. ZOFRAN [Concomitant]
     Active Substance: ONDANSETRON HYDROCHLORIDE
  2. LONSURF [Suspect]
     Active Substance: TIPIRACIL HYDROCHLORIDE\TRIFLURIDINE
     Indication: CARCINOID TUMOUR
     Route: 048
     Dates: start: 20170526
  3. METOCLOPRAM [Concomitant]
     Active Substance: METOCLOPRAMIDE
  4. COMPLEX B-50 [Concomitant]
  5. PROBIOTIC [Concomitant]
     Active Substance: PROBIOTICS NOS
  6. OXYCODONE [Concomitant]
     Active Substance: OXYCODONE
  7. FENTANYL. [Concomitant]
     Active Substance: FENTANYL
  8. METHYLPHENID [Concomitant]
     Active Substance: METHYLPHENIDATE
  9. SMZ/TMP [Concomitant]
     Active Substance: SULFAMETHOXAZOLE\TRIMETHOPRIM

REACTIONS (4)
  - Nausea [None]
  - Feeding disorder [None]
  - Therapy cessation [None]
  - Vomiting [None]
